FAERS Safety Report 9393917 (Version 1)
Quarter: 2013Q3

REPORT INFORMATION
  Report Type: Spontaneous
  Country: FR (occurrence: FR)
  Receive Date: 20130710
  Receipt Date: 20130710
  Transmission Date: 20140515
  Serious: Yes (Hospitalization)
  Sender: FDA-Public Use
  Company Number: FR-BAXTER-2013BAX025578

PATIENT
  Age: 19 Year
  Sex: Male

DRUGS (1)
  1. SEVOFLURANE BAXTER 1 ML/ML, LIQUIDE POUR INHALATION PAR VAPEUR [Suspect]
     Indication: ASTHMA
     Route: 055
     Dates: start: 20070711, end: 20070716

REACTIONS (3)
  - Delirium [Unknown]
  - Anxiety [Unknown]
  - Petit mal epilepsy [Unknown]
